FAERS Safety Report 4683078-X (Version None)
Quarter: 2005Q2

REPORT INFORMATION
  Report Type: 
  Country: None (occurrence: None)
  Receive Date: 20050602
  Receipt Date: 20050211
  Transmission Date: 20051028
  Serious: No
  Sender: FDA-Public Use
  Company Number: USA050290625

PATIENT
  Age: 43 Year
  Sex: Female

DRUGS (3)
  1. CYMBALTA [Suspect]
     Dosage: 30 MG DAY
     Dates: start: 20050208
  2. PREVACID [Concomitant]
  3. ACETAMINOPHEN [Concomitant]

REACTIONS (8)
  - ANXIETY [None]
  - CRYING [None]
  - DYSGEUSIA [None]
  - HYPOAESTHESIA [None]
  - NAUSEA [None]
  - PARAESTHESIA [None]
  - SOMNOLENCE [None]
  - VISION BLURRED [None]
